FAERS Safety Report 22122325 (Version 1)
Quarter: 2023Q1

REPORT INFORMATION
  Report Type: Spontaneous
  Country: SI (occurrence: SI)
  Receive Date: 20230321
  Receipt Date: 20230321
  Transmission Date: 20230418
  Serious: Yes (Other)
  Sender: FDA-Public Use
  Company Number: SI-WOODWARD-2023-SI-000002

PATIENT
  Age: 77 Year
  Sex: Male

DRUGS (14)
  1. DUTASTERIDE\TAMSULOSIN HYDROCHLORIDE [Suspect]
     Active Substance: DUTASTERIDE\TAMSULOSIN HYDROCHLORIDE
     Indication: Prostatic specific antigen increased
     Dosage: 1 DF, QD (1 CAPS IN THE EVENINGS)
     Route: 048
     Dates: start: 2014
  2. EUTHYROX [Concomitant]
     Active Substance: LEVOTHYROXINE SODIUM
     Route: 065
  3. MONOSAN [Concomitant]
     Dosage: UNKNOWN
     Route: 065
  4. INDAPAMIDE\PERINDOPRIL ERBUMINE [Concomitant]
     Active Substance: INDAPAMIDE\PERINDOPRIL ERBUMINE
     Dosage: UNKNOWN
     Route: 065
  5. ROSUVASTATIN CALCIUM [Concomitant]
     Active Substance: ROSUVASTATIN CALCIUM
     Dosage: UNKNOWN
     Route: 065
  6. FLEBAVEN [Concomitant]
     Dosage: UNKNOWN
     Route: 065
  7. VITAMIN D3 [Concomitant]
     Active Substance: CHOLECALCIFEROL
     Dosage: UNKNOWN
     Route: 065
  8. FENOFIBRATE [Concomitant]
     Active Substance: FENOFIBRATE
     Dosage: UNKNOWN
     Route: 065
  9. DIOSMIN [Concomitant]
     Active Substance: DIOSMIN
     Dosage: UNKNOWN
     Route: 065
  10. METOPROLOL TARTRATE [Concomitant]
     Active Substance: METOPROLOL TARTRATE
     Dosage: UNKNOWN
     Route: 065
  11. AMLODIPINE BESYLATE\PERINDOPRIL ERBUMINE [Concomitant]
     Active Substance: AMLODIPINE BESYLATE\PERINDOPRIL ERBUMINE
     Dosage: UNKNOWN
     Route: 065
  12. EUTHYROX [Concomitant]
     Active Substance: LEVOTHYROXINE SODIUM
     Dosage: UNKNOWN
     Route: 065
  13. XARELTO [Concomitant]
     Active Substance: RIVAROXABAN
     Dosage: UNKNOWN
     Route: 065
  14. OMEPRAZOLE [Concomitant]
     Active Substance: OMEPRAZOLE
     Dosage: UNKNOWN
     Route: 065

REACTIONS (3)
  - Cardiac failure [Not Recovered/Not Resolved]
  - Atrial fibrillation [Not Recovered/Not Resolved]
  - Dry mouth [Not Recovered/Not Resolved]

NARRATIVE: CASE EVENT DATE: 20210101
